FAERS Safety Report 9845716 (Version 1)
Quarter: 2014Q1

REPORT INFORMATION
  Report Type: Spontaneous
  Country: US (occurrence: None)
  Receive Date: 20140122
  Receipt Date: 20140122
  Transmission Date: 20141002
  Serious: Yes (Hospitalization, Other)
  Sender: FDA-Public Use
  Company Number: SYM-2014-14784

PATIENT
  Age: 31 Year
  Sex: Male

DRUGS (1)
  1. BUPROPION HYDROCHLORIDE (BUPROPION HYDROCHLORIDE) (BUPROPION HYDROCHLORIDE) [Suspect]
     Indication: PRODUCT USED FOR UNKNOWN INDICATION

REACTIONS (13)
  - Confusional state [None]
  - Cardiotoxicity [None]
  - Laceration [None]
  - Sinus tachycardia [None]
  - Head injury [None]
  - Epilepsy [None]
  - Muscle twitching [None]
  - Ventricular extrasystoles [None]
  - Electrocardiogram QRS complex prolonged [None]
  - Electrocardiogram QT prolonged [None]
  - Atrial fibrillation [None]
  - Aspiration [None]
  - Overdose [None]
